FAERS Safety Report 14898504 (Version 1)
Quarter: 2018Q2

REPORT INFORMATION
  Report Type: Report from Study
  Country: US (occurrence: US)
  Receive Date: 20180515
  Receipt Date: 20180515
  Transmission Date: 20180711
  Serious: Yes (Hospitalization)
  Sender: FDA-Public Use
  Company Number: US-MYLANLABS-2018M1031326

PATIENT
  Age: 19 Year
  Sex: Male
  Weight: 132 kg

DRUGS (6)
  1. METHOTREXATE. [Suspect]
     Active Substance: METHOTREXATE
     Indication: ACUTE LYMPHOCYTIC LEUKAEMIA
     Dosage: 15 MG, DAYS 29 AND 36
     Route: 037
     Dates: start: 20161111, end: 20170626
  2. METHOTREXATE. [Suspect]
     Active Substance: METHOTREXATE
     Dosage: 387 UNITS UNSPECIFIED ON DAYS 1, 11, 21, 31 AND 41
     Route: 042
     Dates: start: 20170627, end: 20170707
  3. ASPARAGINASE [Suspect]
     Active Substance: ASPARAGINASE
     Indication: ACUTE LYMPHOCYTIC LEUKAEMIA
     Dosage: 60000 UNITS EVERY OTHER DAY ON DAYS 43-52
     Route: 030
     Dates: start: 20161126, end: 20170709
  4. VINCRISTINE [Suspect]
     Active Substance: VINCRISTINE
     Dosage: OFF PROTOCOL TREATMENT
     Dates: start: 20170801
  5. METHOTREXATE. [Suspect]
     Active Substance: METHOTREXATE
     Dosage: OFF PROTOCOL TREATMENT
     Dates: start: 20170801
  6. VINCRISTINE [Suspect]
     Active Substance: VINCRISTINE
     Indication: ACUTE LYMPHOCYTIC LEUKAEMIA
     Dosage: 2 MG, DAYS 1, 8, 15
     Route: 042
     Dates: start: 20161125, end: 20170707

REACTIONS (3)
  - Febrile neutropenia [Recovered/Resolved]
  - Acute kidney injury [Recovered/Resolved]
  - Stomatitis [Recovered/Resolved]

NARRATIVE: CASE EVENT DATE: 20170803
